FAERS Safety Report 11060459 (Version 1)
Quarter: 2015Q2

REPORT INFORMATION
  Report Type: Spontaneous
  Country: TR (occurrence: TR)
  Receive Date: 20150423
  Receipt Date: 20150423
  Transmission Date: 20150821
  Serious: Yes (Hospitalization)
  Sender: FDA-Public Use
  Company Number: TR-MYLANLABS-2015M1013661

PATIENT

DRUGS (2)
  1. LITHIUM. [Suspect]
     Active Substance: LITHIUM
     Indication: BIPOLAR DISORDER
     Dosage: FOR 9 MONTHS
     Route: 065
  2. VALPROATE [Suspect]
     Active Substance: VALPROATE SODIUM
     Route: 065

REACTIONS (1)
  - Parkinsonism [Recovered/Resolved]
